FAERS Safety Report 23287655 (Version 5)
Quarter: 2024Q1

REPORT INFORMATION
  Report Type: Spontaneous
  Country: MY (occurrence: MY)
  Receive Date: 20231212
  Receipt Date: 20240131
  Transmission Date: 20240410
  Serious: Yes (Other)
  Sender: FDA-Public Use
  Company Number: MY-MYLANLABS-2023M1129158

PATIENT
  Sex: Female

DRUGS (1)
  1. NORVASC [Suspect]
     Active Substance: AMLODIPINE BESYLATE
     Indication: Hypertension
     Dosage: 10 MILLIGRAM, AM
     Route: 048

REACTIONS (7)
  - Foreign body in throat [Unknown]
  - Oropharyngeal pain [Unknown]
  - Throat irritation [Unknown]
  - Oedema peripheral [Unknown]
  - Product shape issue [Unknown]
  - Product quality issue [Unknown]
  - Product coating issue [Unknown]
